FAERS Safety Report 6817285-4 (Version None)
Quarter: 2010Q2

REPORT INFORMATION
  Report Type: 
  Country: None (occurrence: None)
  Receive Date: 20100630
  Receipt Date: 20100618
  Transmission Date: 20101027
  Serious: Yes (Hospitalization)
  Sender: FDA-Public Use
  Company Number: 014149

PATIENT

DRUGS (3)
  1. LACOSAMIDE [Suspect]
     Indication: PARTIAL SEIZURES
     Dates: start: 20090122
  2. LAMOTRIGINE [Concomitant]
  3. VALPROIC ACID [Concomitant]

REACTIONS (1)
  - ATRIAL FIBRILLATION [None]
